FAERS Safety Report 12856110 (Version 1)
Quarter: 2016Q4

REPORT INFORMATION
  Report Type: Spontaneous
  Country: US (occurrence: US)
  Receive Date: 20161017
  Receipt Date: 20161017
  Transmission Date: 20170207
  Serious: Yes (Disabling)
  Sender: FDA-Public Use
  Company Number: None

PATIENT
  Age: 22 Year
  Sex: Female
  Weight: 69.3 kg

DRUGS (1)
  1. NEXPLANON [Suspect]
     Active Substance: ETONOGESTREL
     Indication: CONTRACEPTION
     Dosage: ?          OTHER FREQUENCY:IMPLANT;?
     Route: 058

REACTIONS (25)
  - Haemorrhage [None]
  - Nasopharyngitis [None]
  - Acne [None]
  - Dysmenorrhoea [None]
  - Influenza like illness [None]
  - Loss of consciousness [None]
  - Irritability [None]
  - Impaired work ability [None]
  - Headache [None]
  - Hyperhidrosis [None]
  - Weight increased [None]
  - Mood swings [None]
  - Fatigue [None]
  - Dizziness [None]
  - Eating disorder [None]
  - Movement disorder [None]
  - Abdominal pain [None]
  - Asthenia [None]
  - Nausea [None]
  - Vaginal discharge [None]
  - Depression [None]
  - Back pain [None]
  - Hypotension [None]
  - Vomiting [None]
  - Menorrhagia [None]

NARRATIVE: CASE EVENT DATE: 20160101
